FAERS Safety Report 8060962-0 (Version None)
Quarter: 2012Q1

REPORT INFORMATION
  Report Type: 
  Country: None (occurrence: None)
  Receive Date: 20120120
  Receipt Date: 20120110
  Transmission Date: 20120608
  Serious: Yes (Hospitalization, Other)
  Sender: FDA-Public Use
  Company Number: US-RB-036349-12

PATIENT

DRUGS (5)
  1. WELLBUTRIN SR [Concomitant]
     Route: 064
  2. BUPRENORPHINE [Suspect]
     Indication: DRUG DEPENDENCE
     Route: 064
     Dates: start: 20110720, end: 20111001
  3. ONDANSETRON HCL [Concomitant]
     Dosage: DOSING DETAILS UNKNOWN
     Route: 064
  4. PNV-DHA [Concomitant]
     Dosage: DOSING DETAILS UNKNOWN
     Route: 064
  5. MULTIVITAMIN [Concomitant]
     Dosage: DOSING DETAILS UNKNOWN
     Route: 064

REACTIONS (2)
  - FOETAL EXPOSURE DURING PREGNANCY [None]
  - PREMATURE BABY [None]
